FAERS Safety Report 19521043 (Version 1)
Quarter: 2021Q3

REPORT INFORMATION
  Report Type: Spontaneous
  Country: US (occurrence: US)
  Receive Date: 20210712
  Receipt Date: 20210712
  Transmission Date: 20211014
  Serious: Yes (Other)
  Sender: FDA-Public Use
  Company Number: NVSC2020US273063

PATIENT
  Age: 74 Year
  Sex: Male

DRUGS (5)
  1. JAKAFI [Suspect]
     Active Substance: RUXOLITINIB
     Dosage: 15 MG QOD, ALTERNATING W/ 10 MG QOD
     Route: 048
     Dates: start: 20190822
  2. PREDNISONE. [Suspect]
     Active Substance: PREDNISONE
     Indication: POLYMYALGIA RHEUMATICA
     Dosage: UNK
     Route: 065
  3. JAKAFI [Suspect]
     Active Substance: RUXOLITINIB
     Dosage: 10 MG, QD
     Route: 048
     Dates: start: 202105
  4. JAKAFI [Suspect]
     Active Substance: RUXOLITINIB
     Indication: MYELOFIBROSIS
     Dosage: 15 MG QOD, ALTERNATING W/ 10 MG QOD
     Route: 048
     Dates: start: 20190821
  5. JAKAFI [Suspect]
     Active Substance: RUXOLITINIB
     Dosage: 10 MG, QD
     Route: 048
     Dates: start: 20190821

REACTIONS (8)
  - Laboratory test abnormal [Unknown]
  - Feeling abnormal [Unknown]
  - Polymyalgia rheumatica [Unknown]
  - Fatigue [Unknown]
  - Anaemia [Unknown]
  - Neuropathy peripheral [Unknown]
  - Autoimmune disorder [Unknown]
  - Memory impairment [Unknown]
